FAERS Safety Report 16723459 (Version 1)
Quarter: 2019Q3

REPORT INFORMATION
  Report Type: Spontaneous
  Country: DE (occurrence: DE)
  Receive Date: 20190821
  Receipt Date: 20190821
  Transmission Date: 20191005
  Serious: Yes (Hospitalization)
  Sender: FDA-Public Use
  Company Number: DE-TEVA-2019-DE-1094116

PATIENT
  Age: 92 Year
  Sex: Male

DRUGS (11)
  1. LACOSAMID 50 MG [Concomitant]
     Dosage: 50 MG, 2-0-2-0
  2. ATORVASTATIN 40 MG [Concomitant]
     Active Substance: ATORVASTATIN
     Dosage: 40 MG, 0-0-1-0
  3. TORASEMID 5 MG [Suspect]
     Active Substance: TORSEMIDE
     Dosage: 5 MG, 1-0-0-0
     Route: 065
  4. LEVODOPA/CARBIDOPA [Concomitant]
     Active Substance: CARBIDOPA\LEVODOPA
     Dosage: 100|25 MG, 1-2-2-0, 5 DOSAGE FORM
  5. THEOPHYLLIN 375 MG [Concomitant]
     Dosage: 375 MG, 1-0-1-0
  6. BALDRIANWURZEL [Concomitant]
     Dosage: NK MG, 0-0-0-1, 1 DOSAGE FORM
  7. PRAMIPEXOL 0.35 MG [Concomitant]
     Dosage: 0.35 MG, 0-0.5-1-0, 1.5 DOSAGE FORM
  8. OMEPRAZOL 20 MG [Concomitant]
     Active Substance: OMEPRAZOLE
     Dosage: 20 MG, 1-0-0-0
  9. MIRTAZAPIN [Concomitant]
     Active Substance: MIRTAZAPINE
     Dosage: 15 MG, 0-0-0-1
  10. RAMIPRIL 2.5 MG [Concomitant]
     Active Substance: RAMIPRIL
     Dosage: 2.5 MG, 0-0-0.5-0
  11. ACETYLSALICYLSAEURE 100 MG [Concomitant]
     Dosage: 100 MG, 0-1-0-0

REACTIONS (2)
  - Confusional state [Recovered/Resolved]
  - Skin turgor decreased [Recovered/Resolved]
